FAERS Safety Report 21085440 (Version 4)
Quarter: 2022Q4

REPORT INFORMATION
  Report Type: Spontaneous
  Country: AU (occurrence: AU)
  Receive Date: 20220714
  Receipt Date: 20221017
  Transmission Date: 20230113
  Serious: Yes (Other)
  Sender: FDA-Public Use
  Company Number: AU-BEH-2022147228

PATIENT
  Age: 46 Year
  Sex: Female

DRUGS (10)
  1. INTRAGAM P [Suspect]
     Active Substance: HUMAN IMMUNOGLOBULIN G
     Indication: Lower respiratory tract infection
     Dosage: UNK
     Route: 042
     Dates: start: 2013
  2. INTRAGAM P [Suspect]
     Active Substance: HUMAN IMMUNOGLOBULIN G
     Indication: Pneumonia
     Dosage: UNK
     Route: 042
     Dates: start: 20161130
  3. INTRAGAM P [Suspect]
     Active Substance: HUMAN IMMUNOGLOBULIN G
     Indication: Hypogammaglobulinaemia
     Dosage: UNK
     Route: 042
  4. PRIVIGEN [Suspect]
     Active Substance: HUMAN IMMUNOGLOBULIN G
     Indication: Lower respiratory tract infection
     Dosage: UNK TWO ROUNDS 5 WEEKS APART
     Route: 042
     Dates: start: 20200507
  5. PRIVIGEN [Suspect]
     Active Substance: HUMAN IMMUNOGLOBULIN G
     Indication: Rubulavirus test positive
  6. RITUXIMAB [Concomitant]
     Active Substance: RITUXIMAB
     Indication: Lower respiratory tract infection
     Dosage: UNK
     Route: 065
     Dates: start: 2013
  7. PENICILLIN G [Concomitant]
     Active Substance: PENICILLIN G
     Indication: Lower respiratory tract infection
     Dosage: 1.2 GRAM, QID
     Route: 042
  8. DOXYCYCLINE [Concomitant]
     Active Substance: DOXYCYCLINE
     Indication: Pneumonia
     Dosage: 100 MILLIGRAM, BID
     Route: 048
  9. CEFTRIAXONE [Concomitant]
     Active Substance: CEFTRIAXONE
     Indication: Lower respiratory tract infection
     Route: 042
  10. AZITHROMYCIN [Concomitant]
     Active Substance: AZITHROMYCIN
     Indication: Lower respiratory tract infection
     Route: 042

REACTIONS (10)
  - Intracranial pressure increased [Recovered/Resolved]
  - Papilloedema [Recovered/Resolved]
  - Headache [Recovered/Resolved]
  - Papilloedema [Recovered/Resolved]
  - Headache [Recovered/Resolved]
  - Papilloedema [Recovered/Resolved]
  - Headache [Recovered/Resolved]
  - Vomiting [Recovered/Resolved]
  - Vision blurred [Recovered/Resolved]
  - Tinnitus [Recovered/Resolved]
